FAERS Safety Report 19464193 (Version 1)
Quarter: 2021Q2

REPORT INFORMATION
  Report Type: Report from Study
  Country: AT (occurrence: AT)
  Receive Date: 20210627
  Receipt Date: 20210627
  Transmission Date: 20210717
  Serious: Yes (Other)
  Sender: FDA-Public Use
  Company Number: NVSC2021AT136601

PATIENT
  Age: 51 Year
  Sex: Female

DRUGS (1)
  1. METFORMIN [Suspect]
     Active Substance: METFORMIN HYDROCHLORIDE
     Indication: TYPE 2 DIABETES MELLITUS
     Dosage: UNK
     Route: 065

REACTIONS (9)
  - Vision blurred [Unknown]
  - Blood glucose decreased [Unknown]
  - Arthralgia [Unknown]
  - Mental disorder [Unknown]
  - Fatigue [Unknown]
  - Glycosylated haemoglobin decreased [Unknown]
  - Obesity [Unknown]
  - Blood cholesterol increased [Unknown]
  - Depression [Unknown]
